FAERS Safety Report 5070898-5 (Version None)
Quarter: 2006Q3

REPORT INFORMATION
  Report Type: 
  Country: None (occurrence: None)
  Receive Date: 20060804
  Receipt Date: 20060731
  Transmission Date: 20061208
  Serious: Yes (Hospitalization)
  Sender: FDA-Public Use
  Company Number: SE-JNJFOC-20060800377

PATIENT
  Sex: Male

DRUGS (2)
  1. IPREN [Suspect]
     Indication: BACK PAIN
     Dosage: 6 TO 7 TABLETS EVERY DAY
     Route: 048
  2. PARAFLEX [Concomitant]

REACTIONS (5)
  - DECREASED APPETITE [None]
  - MALAISE [None]
  - RED BLOOD CELLS URINE POSITIVE [None]
  - RENAL FAILURE [None]
  - SPLENOMEGALY [None]
